FAERS Safety Report 8219608-0 (Version None)
Quarter: 2012Q1

REPORT INFORMATION
  Report Type: 
  Country: None (occurrence: None)
  Receive Date: 20120307
  Receipt Date: 20110202
  Transmission Date: 20120608
  Serious: Yes (Other)
  Sender: FDA-Public Use
  Company Number: PHHY2011US08677

PATIENT
  Age: 68 Year
  Sex: Male
  Weight: 70 kg

DRUGS (4)
  1. LIPITOR [Concomitant]
  2. BENADRYL (AMMONIUM CHLORIDE, DIPHENHYDRAMINE HYDROCHLORIDE, MENTHOL, S [Concomitant]
  3. FLOMAX [Concomitant]
  4. AFINITOR [Suspect]
     Dosage: 5 MG, QD, ORAL ; 10 MG, QD, ORAL
     Route: 048

REACTIONS (2)
  - PNEUMONIA [None]
  - DYSPNOEA [None]
